APPROVED DRUG PRODUCT: IMVEXXY
Active Ingredient: ESTRADIOL
Strength: 0.004MG
Dosage Form/Route: INSERT;VAGINAL
Application: N208564 | Product #001 | TE Code: AB
Applicant: MAYNE PHARMA LLC
Approved: May 29, 2018 | RLD: Yes | RS: Yes | Type: RX

PATENTS:
Patent 10258630 | Expires: Nov 21, 2032
Patent 10258630 | Expires: Nov 21, 2032
Patent 10398708 | Expires: Nov 21, 2032
Patent 10471072 | Expires: Nov 21, 2032
Patent 10471072 | Expires: Nov 21, 2032
Patent 10398708 | Expires: Nov 21, 2032
Patent 10537581 | Expires: Nov 21, 2032
Patent 10537581 | Expires: Nov 21, 2032
Patent 11246875 | Expires: Nov 21, 2032
Patent 11246875 | Expires: Nov 21, 2032
Patent 11241445 | Expires: Nov 21, 2032
Patent 11241445 | Expires: Nov 21, 2032
Patent 11266661 | Expires: Feb 2, 2034
Patent 11266661 | Expires: Feb 2, 2034
Patent 10668082 | Expires: Nov 21, 2032
Patent 10668082 | Expires: Nov 21, 2032
Patent 10568891 | Expires: Nov 21, 2032
Patent 10568891 | Expires: Nov 21, 2032
Patent 9180091 | Expires: Nov 21, 2032
Patent 10835487 | Expires: Nov 21, 2032
Patent 10835487 | Expires: Nov 21, 2032
Patent 9180091 | Expires: Nov 21, 2032
Patent 10888516 | Expires: Nov 21, 2032
Patent 10888516 | Expires: Nov 21, 2032
Patent 11351182 | Expires: Nov 21, 2032
Patent 11351182 | Expires: Nov 21, 2032
Patent 11065197 | Expires: Nov 21, 2032
Patent 9289382 | Expires: Nov 21, 2032
Patent 10806697 | Expires: Nov 21, 2032
Patent 11123283 | Expires: Nov 21, 2032
Patent 11304959 | Expires: Nov 21, 2032
Patent 11116717 | Expires: Nov 21, 2032